FAERS Safety Report 20496493 (Version 1)
Quarter: 2022Q1

REPORT INFORMATION
  Report Type: Spontaneous
  Country: US (occurrence: US)
  Receive Date: 20220221
  Receipt Date: 20220221
  Transmission Date: 20220423
  Serious: No
  Sender: FDA-Public Use
  Company Number: US-ELI_LILLY_AND_COMPANY-US202202008702

PATIENT
  Sex: Female

DRUGS (1)
  1. HUMULIN 70/30 [Suspect]
     Active Substance: INSULIN HUMAN
     Indication: Product used for unknown indication
     Dosage: 60 U, DAILY
     Route: 065
     Dates: start: 2007

REACTIONS (3)
  - Arthralgia [Unknown]
  - Nasopharyngitis [Unknown]
  - Glycosylated haemoglobin increased [Unknown]
